FAERS Safety Report 12245594 (Version 1)
Quarter: 2016Q2

REPORT INFORMATION
  Report Type: Spontaneous
  Country: US (occurrence: None)
  Receive Date: 20160406
  Receipt Date: 20160406
  Transmission Date: 20160815
  Serious: No
  Sender: FDA-Public Use
  Company Number: None

PATIENT
  Age: 78 Year
  Sex: Male

DRUGS (1)
  1. LUPRON DEPOT [Suspect]
     Active Substance: LEUPROLIDE ACETATE
     Indication: PROSTATE CANCER
     Dosage: 45MG ONCE EVERY 6 MONTHS INTRAMUSCULAR
     Route: 030
     Dates: start: 20150923

REACTIONS (1)
  - Injection site pain [None]

NARRATIVE: CASE EVENT DATE: 201509
